FAERS Safety Report 5328230-5 (Version None)
Quarter: 2007Q2

REPORT INFORMATION
  Report Type: 
  Country: None (occurrence: None)
  Receive Date: 20070514
  Receipt Date: 20070502
  Transmission Date: 20071010
  Serious: Yes (Hospitalization)
  Sender: FDA-Public Use
  Company Number: 2007AL001790

PATIENT
  Age: 31 Year
  Sex: Female

DRUGS (1)
  1. METOCLOPRAMIDE [Suspect]
     Indication: NAUSEA
     Dosage: 10 MG

REACTIONS (15)
  - AGITATION [None]
  - DISTURBANCE IN ATTENTION [None]
  - DIZZINESS [None]
  - DRY MOUTH [None]
  - DYSPNOEA [None]
  - DYSTONIA [None]
  - EPIGASTRIC DISCOMFORT [None]
  - FEAR [None]
  - GENERALISED ANXIETY DISORDER [None]
  - HYPERHIDROSIS [None]
  - PALPITATIONS [None]
  - POLYDIPSIA [None]
  - POLYURIA [None]
  - SLEEP DISORDER [None]
  - THIRST [None]
